FAERS Safety Report 7430583-9 (Version None)
Quarter: 2011Q2

REPORT INFORMATION
  Report Type: 
  Country: None (occurrence: None)
  Receive Date: 20110421
  Receipt Date: 20100716
  Transmission Date: 20111010
  Serious: No
  Sender: FDA-Public Use
  Company Number: US-ASTRAZENECA-2010SE33349

PATIENT
  Sex: Female

DRUGS (7)
  1. BENICAR [Concomitant]
  2. CRESTOR [Suspect]
     Route: 048
     Dates: start: 20100401
  3. MUCINEX [Concomitant]
  4. ETODOLAC [Concomitant]
  5. TOPROL-XL [Suspect]
     Route: 048
     Dates: start: 20091101
  6. SINGULAIR [Concomitant]
  7. LEXAPRO [Concomitant]

REACTIONS (3)
  - ONYCHOCLASIS [None]
  - FATIGUE [None]
  - ALOPECIA [None]
